FAERS Safety Report 24465153 (Version 1)
Quarter: 2024Q4

REPORT INFORMATION
  Report Type: Report from Study
  Country: US (occurrence: US)
  Receive Date: 20241018
  Receipt Date: 20241018
  Transmission Date: 20250115
  Serious: No
  Sender: ROCHE
  Company Number: US-ROCHE-3525503

PATIENT
  Age: 66 Year
  Sex: Female

DRUGS (30)
  1. XOLAIR [Suspect]
     Active Substance: OMALIZUMAB
     Indication: Asthma
     Dosage: INJECT 225MG SUBCUTANEOUSLY EVERY 14 DAY(S)
     Route: 058
  2. XOLAIR [Suspect]
     Active Substance: OMALIZUMAB
     Indication: Asthma
     Dosage: INJECT 225MG SUBCUTANEOUSLY EVERY 14 DAY(S)
     Route: 058
  3. XOLAIR [Suspect]
     Active Substance: OMALIZUMAB
     Indication: Asthma
  4. ALBUTEROL [Concomitant]
     Active Substance: ALBUTEROL
     Dosage: INHALE 2 INHALATIONS INTO THE LUNGS EVERY 6 HORS
  5. PROVENTIL [Concomitant]
     Active Substance: ALBUTEROL
     Dosage: 3 ML EVERY 6 HOURS
  6. ASPIRIN [Concomitant]
     Active Substance: ASPIRIN
     Dosage: 81 MG BY MOUTH DAILY
  7. BOSULIF [Concomitant]
     Active Substance: BOSUTINIB MONOHYDRATE
  8. BREO ELLIPTA [Concomitant]
     Active Substance: FLUTICASONE FUROATE\VILANTEROL TRIFENATATE
     Dosage: INHALE 1 PUFF INTO THE LUNGS EVERY DAY
  9. BUSPAR [Concomitant]
     Active Substance: BUSPIRONE HYDROCHLORIDE
     Dosage: TAKE 1 TABLET 5 MG BY MOUTH 3 TIMES DAILY
  10. CHOLECALCIFEROL [Concomitant]
     Active Substance: CHOLECALCIFEROL
  11. MYCELEX [Concomitant]
     Active Substance: CLOTRIMAZOLE
     Dosage: TAKE 1 TABLET 10 MG, BY MOUTH TIME DAILY
  12. COLCHICINE [Concomitant]
     Active Substance: COLCHICINE
     Dosage: TAKE 1 CAPSULE BY MOUTH ONCE DAILY
  13. MUCINEX DM [Concomitant]
     Active Substance: DEXTROMETHORPHAN HYDROBROMIDE\GUAIFENESIN
     Dosage: TAKE 1 TABLET BY MOUTH EVERY 12 HOURS
  14. EPIPEN [Concomitant]
     Active Substance: EPINEPHRINE
     Dosage: INJECT 0.3 MLS INTO THE MUSCLE AS NEEDED
  15. PEPCID [Concomitant]
     Active Substance: FAMOTIDINE
     Dosage: TAKE 1 TABLET 20 MG, BY MOUTH NIGHTLY AS NEEDED
  16. FLONASE [Concomitant]
     Active Substance: FLUTICASONE PROPIONATE
     Dosage: PLACE 2 SPRAYS INTO BOTH NOSTRILS ONCE DAILY
  17. LASIX [Concomitant]
     Active Substance: FUROSEMIDE
     Dosage: TAKE 0.5 TABLET BY MOUTH ONCE DAILY
  18. ATROVENT HFA [Concomitant]
     Active Substance: IPRATROPIUM BROMIDE
     Dosage: INHALE 2 INHALATIONS INTO THE LUNGS
  19. CLARITIN [Concomitant]
     Active Substance: LORATADINE
     Dosage: TAKE 10 MG BY MOUTH DAILY
  20. COZAAR [Concomitant]
     Active Substance: LOSARTAN POTASSIUM
     Dosage: TAKE 1 TABLET 100 MG BY MOUTH DAILY
  21. MAGNESIUM OXIDE [Concomitant]
     Active Substance: MAGNESIUM OXIDE
     Dosage: TAKE 800 MG BY MOUTH NIGHTLY
  22. SINGULAIR [Concomitant]
     Active Substance: MONTELUKAST SODIUM
     Dosage: TAKE 1 TABLET 10 BY MOUTH NIGHTLY
  23. ZOFRAN [Concomitant]
     Active Substance: ONDANSETRON HYDROCHLORIDE
     Dosage: TAKE 1 TABLET BY MOUTH EVERY 12 HOURS AS NEEDED FOR NAUSEA
  24. KLOR-CON [Concomitant]
     Active Substance: POTASSIUM CHLORIDE
     Dosage: TAKE 1 TABLET 20 BY MOUTH 2 TIMES DAILY
  25. DELTASONE [Concomitant]
     Active Substance: PREDNISONE
     Dosage: TAKE 3 TABLETS BY MOUTH ONCE DAILY
  26. ALDACTONE [Concomitant]
     Active Substance: SPIRONOLACTONE
     Dosage: TAKE 1 TABLET 50 MG BY MOUTH DAILY
  27. SPIRIVA RESPIMAT [Concomitant]
     Active Substance: TIOTROPIUM BROMIDE
  28. ULTRAM [Concomitant]
     Active Substance: TRAMADOL HYDROCHLORIDE
  29. DESYREL [Concomitant]
     Active Substance: TRAZODONE HYDROCHLORIDE
  30. TUSSIONEX PENNKINETIC [Concomitant]
     Active Substance: CHLORPHENIRAMINE\HYDROCODONE

REACTIONS (4)
  - Influenza [Unknown]
  - Aphonia [Not Recovered/Not Resolved]
  - Illness [Unknown]
  - Pyrexia [Unknown]

NARRATIVE: CASE EVENT DATE: 20240304
